FAERS Safety Report 20410257 (Version 1)
Quarter: 2022Q1

REPORT INFORMATION
  Report Type: Report from Study
  Country: AR (occurrence: AR)
  Receive Date: 20220201
  Receipt Date: 20220201
  Transmission Date: 20220423
  Serious: Yes (Death)
  Sender: FDA-Public Use
  Company Number: AR-NOVARTISPH-NVSC2021AR296672

PATIENT
  Age: 71 Year
  Sex: Male

DRUGS (1)
  1. BROLUCIZUMAB [Suspect]
     Active Substance: BROLUCIZUMAB
     Indication: Neovascular age-related macular degeneration
     Dosage: 0.6 MG, PRN (ONCE EVERY 12 WEEKS) (AS PER NEED) (OPHTHALMIC IN THE EYE)
     Route: 047
     Dates: start: 20210908

REACTIONS (3)
  - Cardio-respiratory arrest [Fatal]
  - Chronic obstructive pulmonary disease [Unknown]
  - Inappropriate schedule of product administration [Unknown]

NARRATIVE: CASE EVENT DATE: 20211101
